FAERS Safety Report 8860048 (Version 1)
Quarter: 2012Q4

REPORT INFORMATION
  Report Type: Report from Study
  Country: US (occurrence: US)
  Receive Date: 20121025
  Receipt Date: 20121025
  Transmission Date: 20130627
  Serious: Yes (Hospitalization)
  Sender: FDA-Public Use
  Company Number: US-BIOGENIDEC-2012BI045479

PATIENT
  Age: 29 Year
  Sex: Female
  Weight: 46 kg

DRUGS (2)
  1. TYSABRI [Suspect]
     Indication: CROHN^S DISEASE
     Route: 042
     Dates: start: 20120330
  2. FLOMAX [Concomitant]
     Indication: IMPAIRED HEALING
     Route: 045
     Dates: start: 201207

REACTIONS (1)
  - Ileal stenosis [Recovered/Resolved]
